FAERS Safety Report 13112902 (Version 2)
Quarter: 2017Q1

REPORT INFORMATION
  Report Type: Spontaneous
  Country: US (occurrence: US)
  Receive Date: 20170113
  Receipt Date: 20170118
  Transmission Date: 20170428
  Serious: No
  Sender: FDA-Public Use
  Company Number: US-BAYER-2017-007022

PATIENT
  Age: 72 Year
  Sex: Male
  Weight: 62.99 kg

DRUGS (2)
  1. ALEVE [Suspect]
     Active Substance: NAPROXEN SODIUM
     Indication: HEADACHE
  2. ALEVE [Suspect]
     Active Substance: NAPROXEN SODIUM
     Indication: PAIN
     Dosage: UNKNOWN
     Route: 065
     Dates: start: 2015, end: 2015

REACTIONS (2)
  - Feeling drunk [Unknown]
  - Dizziness [Unknown]

NARRATIVE: CASE EVENT DATE: 2015
